FAERS Safety Report 5644304-3 (Version None)
Quarter: 2008Q1

REPORT INFORMATION
  Report Type: 
  Country: None (occurrence: None)
  Receive Date: 20080229
  Receipt Date: 20080221
  Transmission Date: 20080703
  Serious: Yes (Other)
  Sender: FDA-Public Use
  Company Number: PHBS2007BR20078

PATIENT
  Age: 82 Year
  Sex: Male
  Weight: 83 kg

DRUGS (1)
  1. EXELON [Suspect]
     Indication: DEMENTIA ALZHEIMER'S TYPE
     Dosage: 1 CAPSULE/DAY
     Route: 048
     Dates: start: 20040101

REACTIONS (5)
  - DYSGEUSIA [None]
  - HEPATIC PAIN [None]
  - LIVER DISORDER [None]
  - MALAISE [None]
  - NAUSEA [None]
